FAERS Safety Report 24175936 (Version 2)
Quarter: 2024Q4

REPORT INFORMATION
  Report Type: Spontaneous
  Country: US (occurrence: US)
  Receive Date: 20240806
  Receipt Date: 20241010
  Transmission Date: 20250115
  Serious: No
  Sender: AMGEN
  Company Number: US-AMGEN-USASP2024151572

PATIENT
  Age: 30 Year
  Sex: Female

DRUGS (1)
  1. REPATHA [Suspect]
     Active Substance: EVOLOCUMAB
     Indication: Type IIa hyperlipidaemia
     Dosage: 420 MILLIGRAM/3.5 ML, QMO (EVERY 4 WK)
     Route: 058
     Dates: start: 20240130, end: 20240707

REACTIONS (3)
  - Maternal exposure during pregnancy [Unknown]
  - Abdominal pain [Unknown]
  - Leukocytosis [Unknown]

NARRATIVE: CASE EVENT DATE: 20240720
